FAERS Safety Report 6589088-X (Version None)
Quarter: 2010Q1

REPORT INFORMATION
  Report Type: 
  Country: None (occurrence: None)
  Receive Date: 20100218
  Receipt Date: 20100205
  Transmission Date: 20100710
  Serious: Yes (Life-Threatening, Hospitalization)
  Sender: FDA-Public Use
  Company Number: JP-AMGEN-US391048

PATIENT
  Sex: Male
  Weight: 54 kg

DRUGS (6)
  1. ENBREL [Suspect]
     Indication: RHEUMATOID ARTHRITIS
     Route: 058
     Dates: start: 20090401, end: 20091201
  2. SOLON [Concomitant]
     Route: 048
     Dates: start: 20050720
  3. ACECOL [Concomitant]
     Route: 048
     Dates: start: 20050720
  4. LOXOPROFEN SODIUM [Concomitant]
     Route: 048
     Dates: start: 20050720, end: 20091104
  5. MOVER [Concomitant]
     Route: 048
     Dates: start: 20050720
  6. ADALAT CC [Concomitant]
     Route: 048
     Dates: start: 20050720

REACTIONS (2)
  - CORONARY ARTERY OCCLUSION [None]
  - MYOCARDIAL INFARCTION [None]
